FAERS Safety Report 6531669-3 (Version None)
Quarter: 2010Q1

REPORT INFORMATION
  Report Type: 
  Country: None (occurrence: None)
  Receive Date: 20100107
  Receipt Date: 20100107
  Transmission Date: 20100710
  Serious: Yes (Hospitalization)
  Sender: FDA-Public Use
  Company Number: None

PATIENT
  Age: 59 Year
  Sex: Male
  Weight: 70.8 kg

DRUGS (3)
  1. WARFARIN SODIUM [Suspect]
     Indication: DEEP VEIN THROMBOSIS
     Dosage: 10 MG PM PO
     Route: 048
     Dates: start: 20090602, end: 20090916
  2. WARFARIN SODIUM [Suspect]
     Indication: EMBOLISM
     Dosage: 10 MG PM PO
     Route: 048
     Dates: start: 20090602, end: 20090916
  3. WARFARIN SODIUM [Suspect]
     Indication: THROMBOSIS
     Dosage: 10 MG PM PO
     Route: 048
     Dates: start: 20090602, end: 20090916

REACTIONS (5)
  - ALCOHOL ABUSE [None]
  - EROSIVE DUODENITIS [None]
  - GASTRIC HAEMORRHAGE [None]
  - INTERNATIONAL NORMALISED RATIO INCREASED [None]
  - RECTAL HAEMORRHAGE [None]
